FAERS Safety Report 9597065 (Version 1)
Quarter: 2013Q4

REPORT INFORMATION
  Report Type: Spontaneous
  Country: US (occurrence: US)
  Receive Date: 20131004
  Receipt Date: 20131004
  Transmission Date: 20140711
  Serious: Yes (Other)
  Sender: FDA-Public Use
  Company Number: CHPA2013US015047

PATIENT
  Age: 67 Year
  Sex: Female

DRUGS (2)
  1. EXCEDRIN EXTRA STRENGTH [Suspect]
     Indication: HEADACHE
     Dosage: 2 DF, PRN Q 4-6 H
     Route: 048
  2. EXCEDRIN EXTRA STRENGTH [Suspect]
     Indication: DYSMENORRHOEA

REACTIONS (6)
  - Nerve injury [Recovered/Resolved]
  - Exostosis [Recovered/Resolved]
  - Disease recurrence [Unknown]
  - Dysstasia [Not Recovered/Not Resolved]
  - Therapeutic response unexpected [Unknown]
  - Underdose [Unknown]
